FAERS Safety Report 6172188-6 (Version None)
Quarter: 2009Q2

REPORT INFORMATION
  Report Type: 
  Country: None (occurrence: None)
  Receive Date: 20090429
  Receipt Date: 20081022
  Transmission Date: 20091009
  Serious: No
  Sender: FDA-Public Use
  Company Number: A0753055A

PATIENT
  Sex: Female

DRUGS (5)
  1. ZOFRAN [Suspect]
     Dosage: 4MG THREE TIMES PER DAY
     Route: 048
     Dates: start: 20080901
  2. ERYTHROMYCIN [Concomitant]
  3. SYMBICORT [Concomitant]
  4. LISINOPRIL [Concomitant]
  5. RELAFEN [Concomitant]

REACTIONS (3)
  - NAUSEA [None]
  - OFF LABEL USE [None]
  - THERAPEUTIC RESPONSE UNEXPECTED [None]
